FAERS Safety Report 7505215-1 (Version None)
Quarter: 2011Q2

REPORT INFORMATION
  Report Type: 
  Country: None (occurrence: None)
  Receive Date: 20110526
  Receipt Date: 20110521
  Transmission Date: 20111010
  Serious: No
  Sender: FDA-Public Use
  Company Number: US-PFIZER INC-2011110552

PATIENT
  Sex: Female

DRUGS (2)
  1. ZOLOFT [Suspect]
     Dosage: 100 MG, UNK
  2. ZOLOFT [Suspect]
     Dosage: 12.5 MG, UNK

REACTIONS (2)
  - FEELING ABNORMAL [None]
  - POSTURE ABNORMAL [None]
